FAERS Safety Report 7215543-5 (Version None)
Quarter: 2011Q1

REPORT INFORMATION
  Report Type: 
  Country: None (occurrence: None)
  Receive Date: 20110107
  Receipt Date: 20101227
  Transmission Date: 20110831
  Serious: Yes (Death, Other)
  Sender: FDA-Public Use
  Company Number: US-GENZYME-CAMP-1001240

PATIENT

DRUGS (8)
  1. TACROLIMUS [Concomitant]
     Indication: IMMUNOSUPPRESSANT DRUG THERAPY
     Dosage: UNK, BEGINNING ON DAY -2
     Route: 042
  2. FLUDARA [Suspect]
     Indication: BONE MARROW CONDITIONING REGIMEN
     Dosage: 25 MG/M2, QDX5, TRANSPLANT DAYS -7 TO -3
     Route: 065
  3. CLONAZEPAM [Concomitant]
     Dosage: 1 MG, TID DAY -7 TO -2
     Route: 065
  4. CAMPATH [Suspect]
     Indication: BONE MARROW CONDITIONING REGIMEN
     Dosage: 20 MG, QDX5, TRANSPLANT DAYS -7 TO -3
     Route: 065
  5. BUSULFAN [Suspect]
     Indication: BONE MARROW CONDITIONING REGIMEN
     Dosage: 0.5 MG/KG, ONCE
     Route: 042
  6. BUSULFAN [Suspect]
     Dosage: ON TRANSPLANT DAYS -6 TO -3
     Route: 042
  7. CLONAZEPAM [Concomitant]
     Indication: CONVULSION PROPHYLAXIS
     Dosage: 1 MG, UNK
     Route: 065
  8. TACROLIMUS [Concomitant]
     Dosage: UNK, BEGINNING FROM ENGRAFTMENT
     Route: 048

REACTIONS (2)
  - VENOOCCLUSIVE LIVER DISEASE [None]
  - NEOPLASM MALIGNANT [None]
